FAERS Safety Report 23979563 (Version 3)
Quarter: 2024Q3

REPORT INFORMATION
  Report Type: Report from Study
  Country: CA (occurrence: CA)
  Receive Date: 20240616
  Receipt Date: 20240829
  Transmission Date: 20241016
  Serious: Yes (Other)
  Sender: JOHNSON AND JOHNSON
  Company Number: CA-JNJFOC-20240469458

PATIENT
  Age: 26 Year
  Sex: Female
  Weight: 87 kg

DRUGS (3)
  1. STELARA [Suspect]
     Active Substance: USTEKINUMAB
     Indication: Colitis ulcerative
     Dosage: 0 WEEK
     Route: 040
     Dates: start: 20240416
  2. STELARA [Suspect]
     Active Substance: USTEKINUMAB
     Route: 058
  3. MERCAPTOPURINE [Concomitant]
     Active Substance: MERCAPTOPURINE

REACTIONS (4)
  - Colitis ulcerative [Unknown]
  - Headache [Not Recovered/Not Resolved]
  - Off label use [Unknown]
  - Intentional product use issue [Unknown]

NARRATIVE: CASE EVENT DATE: 20240418
